FAERS Safety Report 25636688 (Version 2)
Quarter: 2025Q3

REPORT INFORMATION
  Report Type: Spontaneous
  Country: AU (occurrence: AU)
  Receive Date: 20250804
  Receipt Date: 20250917
  Transmission Date: 20251020
  Serious: Yes (Other)
  Sender: Haleon PLC
  Company Number: AU-KENVUE-20250708242

PATIENT
  Sex: Female

DRUGS (5)
  1. NICORETTE [Suspect]
     Active Substance: NICOTINE
     Indication: Smoking cessation therapy
     Dosage: 1 DOSAGE FORM, EVERY 4 HOUR (PRODUCT START DATE: APPROXIMATELY: -FEB-2006 OR -FEB-2007)
     Route: 048
  2. NICORETTE [Suspect]
     Active Substance: NICOTINE
     Route: 048
  3. NICORETTE [Suspect]
     Active Substance: NICOTINE
     Indication: Smoking cessation therapy
     Dosage: 1 DOSAGE FORM, EVERY 4 HOUR (PRODUCT START DATE: APPROXIMATELY: -FEB-2006 OR -FEB-2007)
     Route: 048
  4. NICORETTE [Suspect]
     Active Substance: NICOTINE
     Route: 048
  5. NICOTINE [Concomitant]
     Active Substance: NICOTINE
     Indication: Smoking cessation therapy

REACTIONS (4)
  - Neoplasm malignant [Unknown]
  - Drug dependence [Recovered/Resolved]
  - Incorrect product administration duration [Unknown]
  - Lip discolouration [Recovered/Resolved]
